FAERS Safety Report 8259109-7 (Version None)
Quarter: 2012Q2

REPORT INFORMATION
  Report Type: 
  Country: None (occurrence: None)
  Receive Date: 20120404
  Receipt Date: 20120326
  Transmission Date: 20120825
  Serious: Yes (Hospitalization, Other)
  Sender: FDA-Public Use
  Company Number: JP-ROCHE-787003

PATIENT
  Sex: Male

DRUGS (6)
  1. TARCEVA [Suspect]
     Dates: start: 20110510, end: 20110617
  2. RIBOFLAVIN TAB [Concomitant]
     Dates: start: 20110228, end: 20111013
  3. TARCEVA [Suspect]
     Indication: NON-SMALL CELL LUNG CANCER
     Route: 048
     Dates: start: 20110217, end: 20110325
  4. BIOTIN [Concomitant]
     Route: 048
     Dates: start: 20110303, end: 20110701
  5. DIOVAN [Concomitant]
     Route: 048
     Dates: start: 20090130, end: 20110903
  6. MAGNESIUM SULFATE [Concomitant]
     Route: 048
     Dates: start: 20080530, end: 20111016

REACTIONS (3)
  - DERMATITIS ACNEIFORM [None]
  - PHOTOSENSITIVITY REACTION [None]
  - DECREASED APPETITE [None]
